FAERS Safety Report 4379741-0 (Version None)
Quarter: 2004Q2

REPORT INFORMATION
  Report Type: 
  Country: None (occurrence: None)
  Receive Date: 20040617
  Receipt Date: 20040607
  Transmission Date: 20050107
  Serious: Yes (Disabling)
  Sender: FDA-Public Use
  Company Number: GB-GLAXOSMITHKLINE-B0335049A

PATIENT
  Age: 51 Year
  Sex: Female
  Weight: 51 kg

DRUGS (3)
  1. SEROXAT [Suspect]
     Indication: DEPRESSION
     Route: 048
     Dates: start: 19940901, end: 20030501
  2. LIBRIUM [Concomitant]
     Indication: ANXIETY
     Dosage: 5MG PER DAY
     Route: 048
     Dates: start: 19930926
  3. PROPRANOLOL [Concomitant]
     Indication: ANXIETY
     Dosage: 80MG PER DAY
     Route: 048
     Dates: start: 19960823

REACTIONS (5)
  - BODY DYSMORPHIC DISORDER [None]
  - DRUG WITHDRAWAL SYNDROME [None]
  - FEELING HOT [None]
  - SELF ESTEEM DECREASED [None]
  - WEIGHT INCREASED [None]
